FAERS Safety Report 6182856-8 (Version None)
Quarter: 2009Q2

REPORT INFORMATION
  Report Type: 
  Country: None (occurrence: None)
  Receive Date: 20090507
  Receipt Date: 20090423
  Transmission Date: 20091009
  Serious: Yes (Other)
  Sender: FDA-Public Use
  Company Number: SE-GENENTECH-282175

PATIENT
  Age: 64 Year
  Sex: Female

DRUGS (3)
  1. MABTHERA [Suspect]
     Indication: DRUG USE FOR UNKNOWN INDICATION
     Route: 065
  2. PREDNISOLONE [Concomitant]
     Indication: DRUG USE FOR UNKNOWN INDICATION
  3. EMGESAN [Concomitant]
     Indication: DRUG USE FOR UNKNOWN INDICATION

REACTIONS (1)
  - ENCEPHALOPATHY [None]
